FAERS Safety Report 5456636-2 (Version None)
Quarter: 2007Q3

REPORT INFORMATION
  Report Type: 
  Country: None (occurrence: None)
  Receive Date: 20070918
  Receipt Date: 20070228
  Transmission Date: 20080115
  Serious: Yes (Other)
  Sender: FDA-Public Use
  Company Number: US-ASTRAZENECA-2006UW25431

PATIENT
  Sex: Male
  Weight: 104.5 kg

DRUGS (8)
  1. SEROQUEL [Suspect]
     Indication: SCHIZOPHRENIA
     Route: 048
     Dates: start: 20020101, end: 20050501
  2. HALDOL [Concomitant]
     Dates: start: 20060101
  3. NAVANE [Concomitant]
     Dates: start: 19740101, end: 19750101
  4. RISPERDAL [Concomitant]
     Dates: start: 19980101
  5. STELAZINE [Concomitant]
     Dates: start: 19740101
  6. THORAZINE [Concomitant]
     Dates: start: 19700101, end: 19900101
  7. TRILAFON [Concomitant]
  8. ZYPREXA [Concomitant]
     Dosage: STARTED IN LATE 90'S

REACTIONS (2)
  - TARDIVE DYSKINESIA [None]
  - TYPE 2 DIABETES MELLITUS [None]
